FAERS Safety Report 15289004 (Version 1)
Quarter: 2018Q3

REPORT INFORMATION
  Report Type: Spontaneous
  Country: US (occurrence: US)
  Receive Date: 20180817
  Receipt Date: 20180817
  Transmission Date: 20181010
  Serious: No
  Sender: FDA-Public Use
  Company Number: US-BAUSCH-BL-2018-021747

PATIENT
  Sex: Female

DRUGS (1)
  1. LUMIFY [Suspect]
     Active Substance: BRIMONIDINE TARTRATE
     Indication: ERYTHEMA
     Dosage: INSTILLING 1 DROP IN BOTH EYES EVERY OTHER DAY
     Route: 047
     Dates: start: 20180706

REACTIONS (1)
  - Intraocular pressure test abnormal [Unknown]

NARRATIVE: CASE EVENT DATE: 20180806
